FAERS Safety Report 8203749-8 (Version None)
Quarter: 2012Q1

REPORT INFORMATION
  Report Type: 
  Country: None (occurrence: None)
  Receive Date: 20120308
  Receipt Date: 20120228
  Transmission Date: 20120608
  Serious: Yes (Life-Threatening, Other)
  Sender: FDA-Public Use
  Company Number: DSA_48230_2011

PATIENT
  Sex: Male

DRUGS (6)
  1. CITALOPRAM HYDROBROMIDE [Concomitant]
  2. AMIODARONE HYDROCHLORIDE [Concomitant]
  3. BUSPAR [Concomitant]
  4. XENAZINE [Suspect]
     Indication: HUNTINGTON'S DISEASE
     Dosage: (DF ORAL), (12.5 MG 5X/DAY ORAL)
     Route: 048
     Dates: start: 20110101
  5. LORAZEPAM [Concomitant]
  6. METOPROLOL SUCCINATE [Concomitant]

REACTIONS (8)
  - FORMICATION [None]
  - DYSKINESIA [None]
  - SUICIDAL IDEATION [None]
  - HALLUCINATION, TACTILE [None]
  - ANXIETY [None]
  - INSOMNIA [None]
  - MOVEMENT DISORDER [None]
  - HEART RATE DECREASED [None]
